FAERS Safety Report 4659814-5 (Version None)
Quarter: 2005Q2

REPORT INFORMATION
  Report Type: 
  Country: None (occurrence: None)
  Receive Date: 20050510
  Receipt Date: 20050429
  Transmission Date: 20051028
  Serious: Yes (Death, Hospitalization)
  Sender: FDA-Public Use
  Company Number: 04P-163-0282602-00

PATIENT
  Age: 79 Year
  Sex: Male

DRUGS (9)
  1. HUMIRA [Suspect]
     Indication: RHEUMATOID ARTHRITIS
     Dosage: 40 MG, 1 IN 2 WK, SUBCUTANEOUS
     Route: 058
     Dates: start: 20030206
  2. ZOCOR [Concomitant]
  3. VERAPAMIL [Concomitant]
  4. COUMADIN [Concomitant]
  5. RABEPRAZOLE SODIUM [Concomitant]
  6. ALENDRONATE SODIUM [Concomitant]
  7. MULTI-VITAMINS [Concomitant]
  8. CODEINE [Concomitant]
  9. ^TOLDAR^ [Concomitant]

REACTIONS (20)
  - ADHESION [None]
  - ANOXIC ENCEPHALOPATHY [None]
  - AORTIC ATHEROSCLEROSIS [None]
  - AORTIC CALCIFICATION [None]
  - AORTIC VALVE CALCIFICATION [None]
  - ATHEROSCLEROSIS [None]
  - CARDIO-RESPIRATORY ARREST [None]
  - CORONARY ARTERY ATHEROSCLEROSIS [None]
  - MITRAL VALVE CALCIFICATION [None]
  - MYOCARDIAL FIBROSIS [None]
  - MYOCARDIAL INFARCTION [None]
  - MYOCARDIAL ISCHAEMIA [None]
  - NEPHROSCLEROSIS [None]
  - PNEUMOTHORAX [None]
  - POST PROCEDURAL COMPLICATION [None]
  - PROSTATE CANCER [None]
  - PULMONARY CONGESTION [None]
  - RENAL CYST [None]
  - RENAL NECROSIS [None]
  - VASCULAR CALCIFICATION [None]
